FAERS Safety Report 8382960 (Version 3)
Quarter: 2015Q2

REPORT INFORMATION
  Report Type: Report from Study
  Country: US (occurrence: US)
  Receive Date: 20120201
  Receipt Date: 20150622
  Transmission Date: 20150821
  Serious: Yes (Death)
  Sender: FDA-Public Use
  Company Number: US-ROCHE-1035098

PATIENT
  Age: 67 Year
  Sex: Female
  Weight: 72.7 kg

DRUGS (11)
  1. GEMZAR [Concomitant]
     Active Substance: GEMCITABINE HYDROCHLORIDE
     Dosage: THERAPY RECEIVED ON 02/DEC/2005
     Route: 065
  2. TAXOTERE [Concomitant]
     Active Substance: DOCETAXEL
     Dosage: THERAPY RECEIVED ON 12/MAY/2006, 19/MAY/2006, 09/JUN/2006, 02/DEC/2005, 16/DEC/2005, 11/NOV/2005
     Route: 065
     Dates: start: 20050919
  3. DECADRON [Concomitant]
     Active Substance: DEXAMETHASONE
     Dosage: THERAPIES RECEIVED ON  02/DEC/2005, 16/DEC/2005, 20/DEC/2005, 11/NOV/2005
     Route: 065
  4. ZOFRAN [Concomitant]
     Active Substance: ONDANSETRON HYDROCHLORIDE
     Dosage: THERAPY RECEIVED ON 12/MAY/2006, 19/MAY/2006, 02/DEC/2005, 16/DEC/2005, 20/DEC/2005
     Route: 065
  5. AVASTIN [Suspect]
     Active Substance: BEVACIZUMAB
     Indication: BREAST CANCER FEMALE
     Dosage: 5MG/KG
     Route: 065
     Dates: start: 200601
  6. GEMZAR [Concomitant]
     Active Substance: GEMCITABINE HYDROCHLORIDE
     Dosage: THERAPY RECEIVED ON 12/MAY/2006, 19/MAY/2006, 09/JUN/2006, 11/NOV/2005
     Route: 065
     Dates: start: 20050919
  7. XELODA [Suspect]
     Active Substance: CAPECITABINE
     Indication: BREAST CANCER FEMALE
     Route: 048
     Dates: start: 20050906
  8. ATIVAN [Concomitant]
     Active Substance: LORAZEPAM
     Dosage: THERAPY RECEIVED ON  02/DEC/2005, 16/DEC/2005, 20/DEC/2005
     Route: 065
  9. ASPIRIN. [Concomitant]
     Active Substance: ASPIRIN
  10. ARANESP [Concomitant]
     Active Substance: DARBEPOETIN ALFA
     Dosage: THERAPY RECEIVED ON 12/MAY/2006, 19/MAY/2006, 05/MAY/2006, 09/JUN/2006, 02/DEC/2005, 09/DEC/2005, 16
     Route: 065
  11. ALOXI [Concomitant]
     Active Substance: PALONOSETRON HYDROCHLORIDE
     Route: 065

REACTIONS (7)
  - Cataract [Unknown]
  - Pain in extremity [Unknown]
  - Tenderness [Unknown]
  - Death [Fatal]
  - Off label use [Unknown]
  - Haemoglobin decreased [Unknown]
  - Paronychia [Unknown]

NARRATIVE: CASE EVENT DATE: 20060814
